FAERS Safety Report 5899091-0 (Version None)
Quarter: 2008Q3

REPORT INFORMATION
  Report Type: 
  Country: None (occurrence: None)
  Receive Date: 20080925
  Receipt Date: 20080916
  Transmission Date: 20090109
  Serious: Yes (Life-Threatening)
  Sender: FDA-Public Use
  Company Number: CH-ABBOTT-08P-151-0472684-00

PATIENT
  Age: 37 Year
  Sex: Male

DRUGS (10)
  1. AKINETON [Suspect]
     Indication: DRUG USE FOR UNKNOWN INDICATION
     Route: 048
     Dates: start: 20080623, end: 20080703
  2. AKINETON [Suspect]
     Route: 048
     Dates: start: 20080704
  3. CLOZAPINE [Suspect]
     Indication: SCHIZOPHRENIA, PARANOID TYPE
     Route: 048
     Dates: start: 20080619, end: 20080620
  4. CLOZAPINE [Suspect]
     Dates: start: 20080621, end: 20080623
  5. CLOZAPINE [Suspect]
     Dates: start: 20080624, end: 20080703
  6. CLOZAPINE [Suspect]
     Dates: start: 20080704
  7. LORAZEPAM [Suspect]
     Indication: DRUG USE FOR UNKNOWN INDICATION
     Route: 048
     Dates: start: 20080613
  8. ZUCLOPENTHIXOL [Concomitant]
     Indication: MENTAL DISORDER
     Route: 050
     Dates: start: 20080613, end: 20080613
  9. ZUCLOPENTHIXOL [Concomitant]
     Route: 050
     Dates: start: 20080615, end: 20080615
  10. ZUCLOPENTHIXOL [Concomitant]
     Route: 050
     Dates: start: 20080617, end: 20080617

REACTIONS (4)
  - ANTICHOLINERGIC SYNDROME [None]
  - COGNITIVE DISORDER [None]
  - HALLUCINATION, VISUAL [None]
  - MEMORY IMPAIRMENT [None]
